FAERS Safety Report 8988373 (Version 1)
Quarter: 2012Q4

REPORT INFORMATION
  Report Type: Spontaneous
  Country: US (occurrence: None)
  Receive Date: 20121220
  Receipt Date: 20121220
  Transmission Date: 20130627
  Serious: No
  Sender: FDA-Public Use
  Company Number: None

PATIENT
  Age: 36 Year
  Sex: Female
  Weight: 76.66 kg

DRUGS (1)
  1. MIDODRINE [Suspect]
     Indication: NEUROCARDIOGENIC SYNCOPE
     Route: 048
     Dates: start: 20111130, end: 20121130

REACTIONS (1)
  - Muscle spasms [None]
